FAERS Safety Report 4973233-3 (Version None)
Quarter: 2006Q2

REPORT INFORMATION
  Report Type: 
  Country: None (occurrence: None)
  Receive Date: 20060414
  Receipt Date: 20060124
  Transmission Date: 20061013
  Serious: Yes (Hospitalization, Disabling)
  Sender: FDA-Public Use
  Company Number: US-MERCK-0601USA02862

PATIENT
  Age: 61 Year
  Sex: Female
  Weight: 90 kg

DRUGS (1)
  1. VIOXX [Suspect]
     Indication: PAIN MANAGEMENT
     Route: 048
     Dates: start: 20040106, end: 20040122

REACTIONS (15)
  - AORTIC VALVE DISEASE [None]
  - ARTERIOSCLEROSIS [None]
  - CARDIAC FAILURE CONGESTIVE [None]
  - CAROTID ARTERY STENOSIS [None]
  - CONTUSION [None]
  - DRUG TOXICITY [None]
  - DYSARTHRIA [None]
  - HYPERGLYCAEMIA [None]
  - HYPERKALAEMIA [None]
  - LACUNAR INFARCTION [None]
  - MALIGNANT HYPERTENSION [None]
  - PERIPHERAL VASCULAR DISORDER [None]
  - PULMONARY GRANULOMA [None]
  - RED BLOOD CELL SEDIMENTATION RATE INCREASED [None]
  - RENAL FAILURE [None]
